FAERS Safety Report 6441168-5 (Version None)
Quarter: 2009Q4

REPORT INFORMATION
  Report Type: 
  Country: None (occurrence: None)
  Receive Date: 20091112
  Receipt Date: 20091028
  Transmission Date: 20100525
  Serious: Yes (Hospitalization)
  Sender: FDA-Public Use
  Company Number: 232456J09USA

PATIENT
  Age: 41 Year
  Sex: Female
  Weight: 73 kg

DRUGS (12)
  1. REBIF [Suspect]
     Indication: MULTIPLE SCLEROSIS
     Dosage: 44 MCG, 3 IN 1 WEEKS, SUBCUTANEOUS
     Route: 058
     Dates: start: 20081101
  2. DEPAKOTE [Concomitant]
  3. KEPPRA [Concomitant]
  4. PRIMODANE (ALL OTHER THERAPEUTIC PRODUCTS) [Concomitant]
  5. POTASSIUM (POTASSIUM /00031401/) [Concomitant]
  6. METHADONE HCL [Concomitant]
  7. PERCOCET [Concomitant]
  8. ZOLOFT [Concomitant]
  9. SEROQUEL [Concomitant]
  10. PAMELOR [Concomitant]
  11. BACLOFEN [Concomitant]
  12. NEURONTIN [Concomitant]

REACTIONS (18)
  - ASPARTATE AMINOTRANSFERASE INCREASED [None]
  - ATRIAL FIBRILLATION [None]
  - BACK PAIN [None]
  - CARDIAC ENZYMES INCREASED [None]
  - CHEST DISCOMFORT [None]
  - DYSPNOEA [None]
  - HAEMATOCRIT DECREASED [None]
  - HAEMOGLOBIN DECREASED [None]
  - HEPATIC ENZYME INCREASED [None]
  - HIGH DENSITY LIPOPROTEIN INCREASED [None]
  - INJECTION SITE ERYTHEMA [None]
  - INJECTION SITE RASH [None]
  - OEDEMA PERIPHERAL [None]
  - PLATELET COUNT DECREASED [None]
  - RED BLOOD CELL COUNT DECREASED [None]
  - RENAL FAILURE CHRONIC [None]
  - VENTRICULAR TACHYCARDIA [None]
  - WHITE BLOOD CELL COUNT DECREASED [None]
